FAERS Safety Report 4725978-8 (Version None)
Quarter: 2005Q3

REPORT INFORMATION
  Report Type: 
  Country: None (occurrence: None)
  Receive Date: 20050727
  Receipt Date: 20050718
  Transmission Date: 20060218
  Serious: Yes (Hospitalization)
  Sender: FDA-Public Use
  Company Number: FR-GLAXOSMITHKLINE-B0388324A

PATIENT
  Age: 50 Year
  Sex: Female

DRUGS (6)
  1. ONDANSETRON [Suspect]
     Route: 048
     Dates: end: 20050318
  2. OMEPRAZOLE [Suspect]
     Route: 048
     Dates: end: 20050318
  3. MIDAZOLAM HCL [Concomitant]
     Route: 042
     Dates: start: 20050315, end: 20050315
  4. DIPRIVAN [Concomitant]
     Route: 042
     Dates: start: 20050315, end: 20050315
  5. ACETAMINOPHEN [Concomitant]
     Route: 048
  6. SUFENTA [Concomitant]
     Route: 042
     Dates: start: 20050315, end: 20050315

REACTIONS (2)
  - ACUTE GENERALISED EXANTHEMATOUS PUSTULOSIS [None]
  - TOXIC SKIN ERUPTION [None]
